FAERS Safety Report 16963596 (Version 2)
Quarter: 2020Q1

REPORT INFORMATION
  Report Type: Spontaneous
  Country: US (occurrence: US)
  Receive Date: 20191025
  Receipt Date: 20200109
  Transmission Date: 20200409
  Serious: Yes (Other)
  Sender: FDA-Public Use
  Company Number: US-LEITERS-2076056

PATIENT
  Age: 76 Year
  Sex: Female
  Weight: 56.82 kg

DRUGS (1)
  1. BEVACIZUMAB 25 MG/ML (2.5 MG/0.1 ML) REPACK INJECTION, 0.1 ML IN 1 ML [Suspect]
     Active Substance: BEVACIZUMAB
     Indication: RETINAL VEIN OCCLUSION
     Route: 047
     Dates: start: 20190815, end: 20191010

REACTIONS (1)
  - Endophthalmitis [Recovered/Resolved]

NARRATIVE: CASE EVENT DATE: 20191012
